FAERS Safety Report 13589774 (Version 1)
Quarter: 2017Q2

REPORT INFORMATION
  Report Type: Spontaneous
  Country: GB (occurrence: GB)
  Receive Date: 20170530
  Receipt Date: 20170530
  Transmission Date: 20170830
  Serious: Yes (Other)
  Sender: FDA-Public Use
  Company Number: PHFR2017GB003937

PATIENT
  Age: 52 Year
  Sex: Female
  Weight: 65.31 kg

DRUGS (2)
  1. TERBINAFINE. [Suspect]
     Active Substance: TERBINAFINE
     Indication: NAIL INFECTION
     Dosage: 250 MG, UNK
     Route: 048
     Dates: start: 20161208, end: 20170428
  2. ECHINACEA [Concomitant]
     Active Substance: ECHINACEA, UNSPECIFIED
     Indication: VIRAL UPPER RESPIRATORY TRACT INFECTION
     Route: 065

REACTIONS (3)
  - Systemic lupus erythematosus rash [Not Recovered/Not Resolved]
  - Ageusia [Recovering/Resolving]
  - Pruritus [Not Recovered/Not Resolved]

NARRATIVE: CASE EVENT DATE: 20170112
